FAERS Safety Report 21955196 (Version 6)
Quarter: 2025Q2

REPORT INFORMATION
  Report Type: Report from Study
  Country: EG (occurrence: EG)
  Receive Date: 20230206
  Receipt Date: 20250620
  Transmission Date: 20250716
  Serious: Yes (Hospitalization, Other)
  Sender: ROCHE
  Company Number: EG-ROCHE-2717124

PATIENT
  Age: 32 Year
  Sex: Female
  Weight: 75 kg

DRUGS (1)
  1. OCREVUS [Suspect]
     Active Substance: OCRELIZUMAB
     Indication: Multiple sclerosis
     Route: 042
     Dates: start: 20191005

REACTIONS (11)
  - Neck pain [Recovered/Resolved]
  - Back pain [Not Recovered/Not Resolved]
  - Arthralgia [Unknown]
  - Vision blurred [Unknown]
  - Deafness [Unknown]
  - Hypoaesthesia [Unknown]
  - Pain [Unknown]
  - Headache [Unknown]
  - Multiple sclerosis [Recovering/Resolving]
  - Headache [Not Recovered/Not Resolved]
  - Nerve block [Recovered/Resolved]

NARRATIVE: CASE EVENT DATE: 20201029
